FAERS Safety Report 9263134 (Version 2)
Quarter: 2013Q2

REPORT INFORMATION
  Report Type: Spontaneous
  Country: GB (occurrence: None)
  Receive Date: 20130425
  Receipt Date: 20130501
  Transmission Date: 20140414
  Serious: Yes (Other)
  Sender: FDA-Public Use
  Company Number: AUR-APL-2013-03286

PATIENT
  Age: 56 Year
  Sex: Male
  Weight: 113 kg

DRUGS (5)
  1. METFORMIN (METFORMIN) [Suspect]
     Indication: DIABETES MELLITUS
     Route: 048
     Dates: start: 20120217
  2. ALLOPURINOL [Concomitant]
  3. BISOPROLOL (BISOPROLOL) [Concomitant]
  4. ENALAPRIL [Concomitant]
  5. SIMVASTATIN (SIMVASTATIN) [Concomitant]

REACTIONS (2)
  - Muscular weakness [None]
  - Musculoskeletal discomfort [None]
